FAERS Safety Report 10871826 (Version 1)
Quarter: 2015Q1

REPORT INFORMATION
  Report Type: Report from Study
  Country: TR (occurrence: TR)
  Receive Date: 20150226
  Receipt Date: 20150226
  Transmission Date: 20150721
  Serious: Yes (Hospitalization)
  Sender: FDA-Public Use
  Company Number: TR-BAYER-2015-026257

PATIENT
  Age: 48 Year
  Sex: Female

DRUGS (2)
  1. BETAFERON [Suspect]
     Active Substance: INTERFERON BETA-1B
     Indication: MULTIPLE SCLEROSIS
     Dosage: UNK, QOD
     Route: 058
     Dates: start: 20110202, end: 20141220
  2. PLAQUENIL [Suspect]
     Active Substance: HYDROXYCHLOROQUINE SULFATE
     Indication: RHEUMATIC DISORDER
     Dosage: UNK
     Dates: start: 20141215, end: 20141220

REACTIONS (5)
  - Swelling face [None]
  - Labelled drug-drug interaction medication error [None]
  - Rash generalised [None]
  - Peripheral swelling [None]
  - Toxicity to various agents [None]

NARRATIVE: CASE EVENT DATE: 201412
